FAERS Safety Report 8092334-7 (Version None)
Quarter: 2012Q1

REPORT INFORMATION
  Report Type: 
  Country: None (occurrence: None)
  Receive Date: 20120130
  Receipt Date: 20120130
  Transmission Date: 20120608
  Serious: No
  Sender: FDA-Public Use
  Company Number: None

PATIENT
  Sex: Male
  Weight: 88.5 kg

DRUGS (5)
  1. RITUXIMAB (MOAB C2B8 ANTI CD20, CHIMERIC) [Suspect]
     Dosage: 750 MG
  2. DOXORUBICIN HCL [Suspect]
     Dosage: 100 MG
  3. CYCLOPHOSPHAMIDE [Suspect]
     Dosage: 1500 MG
  4. VINCRISTINE SULFATE [Suspect]
     Dosage: 2 MG
  5. PREDNISONE TAB [Suspect]
     Dosage: 80 MG

REACTIONS (5)
  - LEFT VENTRICULAR DYSFUNCTION [None]
  - OEDEMA [None]
  - FATIGUE [None]
  - EJECTION FRACTION DECREASED [None]
  - ORTHOSTATIC HYPOTENSION [None]
